FAERS Safety Report 6014799-4 (Version None)
Quarter: 2008Q4

REPORT INFORMATION
  Report Type: 
  Country: None (occurrence: None)
  Receive Date: 20081219
  Receipt Date: 20081212
  Transmission Date: 20090506
  Serious: Yes (Death)
  Sender: FDA-Public Use
  Company Number: PHHY2008NL31636

PATIENT
  Sex: Male

DRUGS (10)
  1. ZOLEDRONATE T29581+SOLINF [Suspect]
  2. ACENOCOUMAROL [Concomitant]
     Dosage: UNK
     Dates: start: 20060101, end: 20080903
  3. ATENOLOL [Concomitant]
     Dosage: 50 MG 1 DD
     Dates: start: 20060101, end: 20080903
  4. BUMETANIDE [Concomitant]
     Dosage: 2 MG 1 DD
     Dates: start: 20060101, end: 20080903
  5. NIFEDIPINE [Concomitant]
     Dosage: 30 MG 1 DD
     Dates: start: 20060101, end: 20080903
  6. SPIRONOLACTONE [Concomitant]
     Dosage: 25 MG 1DD
     Dates: start: 20060101, end: 20080903
  7. METAMUCIL [Concomitant]
     Dosage: 2 DD
     Dates: start: 20060101, end: 20080903
  8. PARACETAMOL WITH CODEINE PHOSPHATE [Concomitant]
     Dosage: 500/10 MG
     Dates: start: 20080307, end: 20080903
  9. CALCIUM D3 [Concomitant]
     Dosage: 1000 MG 1DD
     Dates: start: 20080516, end: 20080903
  10. CALCICHEW [Concomitant]
     Dosage: 1000 MG 2 DD
     Dates: start: 20080516, end: 20080903

REACTIONS (1)
  - DEATH [None]
